FAERS Safety Report 14127514 (Version 2)
Quarter: 2017Q4

REPORT INFORMATION
  Report Type: Spontaneous
  Country: US (occurrence: US)
  Receive Date: 20171026
  Receipt Date: 20171102
  Transmission Date: 20180321
  Serious: Yes (Other)
  Sender: FDA-Public Use
  Company Number: US-CIPLA LTD.-2017US18488

PATIENT

DRUGS (14)
  1. TEMOZOLOMIDE. [Suspect]
     Active Substance: TEMOZOLOMIDE
     Indication: CHOROID PLEXUS CARCINOMA
     Dosage: 140 MG/M2, FOR 5 DAYS, FOR 3 CYCLES
     Route: 065
     Dates: start: 201209, end: 201211
  2. VINCRISTINE [Suspect]
     Active Substance: VINCRISTINE
     Dosage: 1.5 MG/M2, UNK, 1 CYCLE
     Route: 065
     Dates: start: 201308, end: 201309
  3. IRINOTECAN [Suspect]
     Active Substance: IRINOTECAN
     Indication: CHOROID PLEXUS CARCINOMA
     Dosage: 125 MG/M2, UNK, 3 CYCLES
     Route: 065
     Dates: start: 201209, end: 201211
  4. CYCLOPHOSPHAMIDE. [Suspect]
     Active Substance: CYCLOPHOSPHAMIDE
     Indication: CHOROID PLEXUS CARCINOMA
     Dosage: UNK, FOR 12 CYCLES
     Route: 065
     Dates: start: 2011
  5. METHOTREXATE. [Suspect]
     Active Substance: METHOTREXATE
     Indication: CHOROID PLEXUS CARCINOMA
     Dosage: 8 GM/M2, UNK, FOR 2 CYCLES
     Route: 065
     Dates: start: 201212, end: 201301
  6. BEVACIZUMAB. [Suspect]
     Active Substance: BEVACIZUMAB
     Indication: CHOROID PLEXUS CARCINOMA
     Dosage: 10 MG/KG, UNK, FOR 3 CYCLES
     Route: 065
     Dates: start: 201209, end: 201211
  7. CARBOPLATIN. [Suspect]
     Active Substance: CARBOPLATIN
     Dosage: 560 MG/M2, HIGH DOSE, 2 CYCLES
     Route: 065
     Dates: start: 201303, end: 201307
  8. CARBOPLATIN. [Suspect]
     Active Substance: CARBOPLATIN
     Indication: CHOROID PLEXUS CARCINOMA
     Dosage: UNK, FOR 12 CYCLES
     Route: 065
  9. ETOPOSIDE. [Suspect]
     Active Substance: ETOPOSIDE
     Indication: CHOROID PLEXUS CARCINOMA
     Dosage: UNK, FOR 12 CYCLES
     Route: 065
  10. ETOPOSIDE. [Suspect]
     Active Substance: ETOPOSIDE
     Dosage: 100 MG/M2, FOR 5 DAYS, 2 CYCLES
     Route: 065
     Dates: start: 201303, end: 201307
  11. METHOTREXATE. [Suspect]
     Active Substance: METHOTREXATE
     Dosage: 8 GM/M2, UNK, 1 CYCLE
     Route: 065
     Dates: start: 201308, end: 201309
  12. VINCRISTINE [Suspect]
     Active Substance: VINCRISTINE
     Indication: CHOROID PLEXUS CARCINOMA
     Dosage: 1.5 MG/M2, UNK, FOR 2 CYCLES
     Route: 065
     Dates: start: 201212, end: 201301
  13. VINCRISTINE [Suspect]
     Active Substance: VINCRISTINE
     Dosage: 1.5 MG/M2, UNK, FOR 2 CYCLES
     Route: 065
     Dates: start: 201303, end: 201307
  14. IFOSFAMIDE. [Suspect]
     Active Substance: IFOSFAMIDE
     Indication: CHOROID PLEXUS CARCINOMA
     Dosage: 1800 MG/M2, FOR 2 CYCLES
     Route: 065
     Dates: start: 201303, end: 201307

REACTIONS (7)
  - Metastases to spine [Unknown]
  - Abscess [Unknown]
  - Decreased appetite [Unknown]
  - Neoplasm progression [Unknown]
  - Vomiting [Unknown]
  - Full blood count decreased [Unknown]
  - Neoplasm recurrence [Unknown]

NARRATIVE: CASE EVENT DATE: 201208
